FAERS Safety Report 8587326-5 (Version None)
Quarter: 2012Q3

REPORT INFORMATION
  Report Type: 
  Country: None (occurrence: None)
  Receive Date: 20120810
  Receipt Date: 20120215
  Transmission Date: 20120928
  Serious: No
  Sender: FDA-Public Use
  Company Number: US-ASTRAZENECA-2012SE08167

PATIENT
  Age: 68 Year
  Sex: Female
  Weight: 59.9 kg

DRUGS (1)
  1. ARIMIDEX [Suspect]
     Indication: BREAST CANCER
     Route: 048
     Dates: start: 20110301

REACTIONS (3)
  - WEIGHT LOSS POOR [None]
  - WEIGHT INCREASED [None]
  - HYPOPHAGIA [None]
